FAERS Safety Report 10261583 (Version 1)
Quarter: 2014Q2

REPORT INFORMATION
  Report Type: Spontaneous
  Country: US (occurrence: US)
  Receive Date: 20140626
  Receipt Date: 20140626
  Transmission Date: 20141212
  Serious: No
  Sender: FDA-Public Use
  Company Number: US-ASTRAZENECA-2014SE41149

PATIENT
  Age: 61 Year
  Sex: Male
  Weight: 86.2 kg

DRUGS (12)
  1. NEXIUM [Suspect]
     Indication: GASTROOESOPHAGEAL REFLUX DISEASE
     Route: 048
     Dates: start: 201312, end: 201405
  2. NEXIUM [Suspect]
     Indication: GASTROOESOPHAGEAL REFLUX DISEASE
     Route: 048
     Dates: start: 201405
  3. HYDRALAZINE [Concomitant]
     Indication: BLOOD PRESSURE ABNORMAL
     Route: 048
  4. ENALAPRIL [Concomitant]
     Indication: BLOOD PRESSURE ABNORMAL
     Route: 048
  5. ENALAPRIL [Concomitant]
     Indication: CHEST PAIN
     Route: 048
  6. AMLODIPINE [Concomitant]
     Indication: BLOOD PRESSURE ABNORMAL
     Route: 048
  7. WELLBUTRIN [Concomitant]
     Indication: DEPRESSION
     Route: 048
  8. TRAZADONE [Concomitant]
     Indication: SLEEP DISORDER
     Route: 048
  9. CREON LYPASE [Concomitant]
     Indication: PANCREATIC ENZYMES ABNORMAL
     Dosage: 36000/114000/180000 UNK
     Route: 048
  10. HUMALIN 70/30 [Concomitant]
     Indication: DIABETES MELLITUS
     Dosage: 74 UNITS AC IN MORNING
     Route: 058
  11. PROTEASE [Concomitant]
     Indication: PANCREATIC ENZYMES ABNORMAL
  12. AMYLASE [Concomitant]
     Indication: PANCREATIC ENZYMES ABNORMAL

REACTIONS (2)
  - Inflammation [Unknown]
  - Off label use [Not Recovered/Not Resolved]
